FAERS Safety Report 17465087 (Version 2)
Quarter: 2020Q2

REPORT INFORMATION
  Report Type: Spontaneous
  Country: IN (occurrence: IN)
  Receive Date: 20200226
  Receipt Date: 20200403
  Transmission Date: 20200713
  Serious: Yes (Other)
  Sender: FDA-Public Use
  Company Number: IN-ALLERGAN-2008350US

PATIENT
  Sex: Female

DRUGS (3)
  1. LEVOBUNOLOL [Concomitant]
     Active Substance: LEVOBUNOLOL
     Indication: ANGLE CLOSURE GLAUCOMA
     Route: 047
  2. BRIMONIDINE [Suspect]
     Active Substance: BRIMONIDINE TARTRATE
     Indication: ANGLE CLOSURE GLAUCOMA
     Dosage: UNK
     Route: 047
     Dates: start: 201901
  3. DORZOLAMIDE [Concomitant]
     Active Substance: DORZOLAMIDE
     Indication: ANGLE CLOSURE GLAUCOMA
     Route: 047

REACTIONS (2)
  - Drug ineffective [Unknown]
  - Uveitis [Recovered/Resolved]

NARRATIVE: CASE EVENT DATE: 2019
